FAERS Safety Report 23255718 (Version 1)
Quarter: 2023Q4

REPORT INFORMATION
  Report Type: Spontaneous
  Country: US (occurrence: None)
  Receive Date: 20231204
  Receipt Date: 20231204
  Transmission Date: 20240110
  Serious: No
  Sender: FDA-Public Use
  Company Number: 2023A259731

PATIENT

DRUGS (1)
  1. CALQUENCE [Suspect]
     Active Substance: ACALABRUTINIB
     Route: 048

REACTIONS (5)
  - Abdominal distension [Unknown]
  - Abdominal lymphadenopathy [Unknown]
  - Palpitations [Unknown]
  - Lung disorder [Unknown]
  - Cardiac disorder [Unknown]
